FAERS Safety Report 6105957-9 (Version None)
Quarter: 2009Q1

REPORT INFORMATION
  Report Type: 
  Country: None (occurrence: None)
  Receive Date: 20090306
  Receipt Date: 20080414
  Transmission Date: 20090719
  Serious: Yes (Other)
  Sender: FDA-Public Use
  Company Number: US-BRISTOL-MYERS SQUIBB COMPANY-14150361

PATIENT
  Age: 74 Year
  Sex: Female
  Weight: 71 kg

DRUGS (6)
  1. TAXOL [Suspect]
     Indication: OVARIAN CANCER METASTATIC
     Dosage: 2ND SERIES, 1ST INFUSION; SIX MONTHS AGO RECEIVED 1ST SERIES OF 6 INFUSIONS
  2. CARBOPLATIN [Suspect]
     Indication: OVARIAN CANCER METASTATIC
     Dosage: 2ND SERIES, 1ST INFUSION; SIX MONTHS AGO RECEIVED 1ST SERIES OF 6 INFUSIONS
  3. CALCIUM [Concomitant]
  4. ZOFRAN [Concomitant]
     Indication: PREMEDICATION
  5. DECADRON [Concomitant]
     Indication: PREMEDICATION
  6. BENADRYL [Concomitant]
     Indication: PREMEDICATION

REACTIONS (1)
  - FLUSHING [None]
